FAERS Safety Report 9931561 (Version 2)
Quarter: 2018Q3

REPORT INFORMATION
  Report Type: Report from Study
  Country: US (occurrence: US)
  Receive Date: 20140228
  Receipt Date: 20180807
  Transmission Date: 20181010
  Serious: Yes (Other)
  Sender: FDA-Public Use
  Company Number: US-ROCHE-1352270

PATIENT
  Age: 6 Month
  Sex: Male
  Weight: 32.1 kg

DRUGS (9)
  1. NUTROPIN AQ [Suspect]
     Active Substance: SOMATROPIN
     Route: 058
  2. LEVOTHYROXINE. [Concomitant]
     Active Substance: LEVOTHYROXINE
     Dosage: EVERY MORNING BEFORE BREAKFAST ON AN EMPTY STOMACH
     Route: 048
  3. CORTEF [Concomitant]
     Active Substance: HYDROCORTISONE
     Dosage: STRENGTH: 2MG/ML
     Route: 048
  4. CORTEF [Concomitant]
     Active Substance: HYDROCORTISONE
     Route: 065
     Dates: end: 20111011
  5. CORTEF [Concomitant]
     Active Substance: HYDROCORTISONE
     Route: 065
  6. LEVOTHYROXINE. [Concomitant]
     Active Substance: LEVOTHYROXINE
     Route: 048
     Dates: start: 20111011
  7. NUTROPIN AQ [Suspect]
     Active Substance: SOMATROPIN
     Indication: HYPOPITUITARISM
     Dosage: Q HS
     Route: 058
     Dates: start: 201401
  8. NUTROPIN AQ [Suspect]
     Active Substance: SOMATROPIN
     Indication: GROWTH HORMONE DEFICIENCY
     Route: 058
     Dates: start: 201202, end: 201304
  9. TESTOSTERONE. [Concomitant]
     Active Substance: TESTOSTERONE
     Route: 030
     Dates: start: 20111110

REACTIONS (7)
  - Nausea [Unknown]
  - Asthenia [Unknown]
  - Foot deformity [Unknown]
  - Influenza [Unknown]
  - Stress [Unknown]
  - Insulin-like growth factor decreased [Unknown]
  - Positional plagiocephaly [Unknown]

NARRATIVE: CASE EVENT DATE: 20120224
